FAERS Safety Report 8784254 (Version 2)
Quarter: 2012Q4

REPORT INFORMATION
  Report Type: 
  Country: US (occurrence: US)
  Receive Date: 20120913
  Receipt Date: 20121227
  Transmission Date: 20130627
  Serious: No
  Sender: FDA-Public Use
  Company Number: US-ASTRAZENECA-2012SE61360

PATIENT
  Age: 51 Year
  Sex: Female

DRUGS (6)
  1. NEXIUM [Suspect]
     Route: 048
  2. PRILOSEC [Suspect]
     Route: 048
  3. PRILOSEC [Suspect]
     Dosage: GENERIC
     Route: 048
  4. PRILOSEC OTC [Suspect]
     Route: 048
  5. LAMICTAL [Concomitant]
  6. KLONAZEPAM [Concomitant]

REACTIONS (9)
  - Dysphonia [Unknown]
  - Throat irritation [Unknown]
  - Gastric disorder [Unknown]
  - Nasal congestion [Unknown]
  - Increased upper airway secretion [Unknown]
  - Oesophageal disorder [Unknown]
  - Abdominal discomfort [Unknown]
  - Drug dose omission [Unknown]
  - Drug ineffective [Unknown]
